FAERS Safety Report 16208326 (Version 1)
Quarter: 2019Q2

REPORT INFORMATION
  Report Type: Spontaneous
  Country: US (occurrence: US)
  Receive Date: 20190417
  Receipt Date: 20190417
  Transmission Date: 20190711
  Serious: No
  Sender: FDA-Public Use
  Company Number: US-NOVOPROD-648534

PATIENT
  Age: 60 Year
  Sex: Male

DRUGS (2)
  1. FIASP [Suspect]
     Active Substance: INSULIN ASPART
     Indication: INSULIN RESISTANCE
     Dosage: UNK
     Route: 058
     Dates: start: 201801
  2. TRESIBA [Concomitant]
     Active Substance: INSULIN DEGLUDEC
     Indication: INSULIN RESISTANCE
     Dosage: UNK
     Route: 058

REACTIONS (5)
  - Product use in unapproved indication [Unknown]
  - Drug ineffective [Unknown]
  - Blood glucose decreased [Not Recovered/Not Resolved]
  - Nasopharyngitis [Not Recovered/Not Resolved]
  - Blood glucose increased [Unknown]
